FAERS Safety Report 6753637-9 (Version None)
Quarter: 2010Q2

REPORT INFORMATION
  Report Type: 
  Country: None (occurrence: None)
  Receive Date: 20100601
  Receipt Date: 20100519
  Transmission Date: 20101027
  Serious: Yes (Hospitalization)
  Sender: FDA-Public Use
  Company Number: DSU-2008-00329

PATIENT
  Sex: Male
  Weight: 82.1011 kg

DRUGS (19)
  1. BENICAR [Suspect]
     Indication: HYPERTENSION
     Dosage: 40 MG (40 MG,QD), PER ORAL
     Route: 048
     Dates: start: 20080303, end: 20080303
  2. BENICAR [Suspect]
     Indication: HYPERTENSION
     Dosage: 40 MG (40 MG,QD), PER ORAL
     Route: 048
     Dates: end: 20100513
  3. BENICAR [Suspect]
     Indication: HYPERTENSION
     Dosage: 40 MG (40 MG,QD), PER ORAL
     Route: 048
     Dates: start: 20100519
  4. REMERON (MIRTAZAPINE) (15 MILLIGRAM, TABLET) (MIRTAZAPINE) [Concomitant]
  5. DIOVAN [Concomitant]
  6. TRICOR (FENOFIBRATE)(145 MILLIGRAM, TABLET) (FENOFIBRATE) [Concomitant]
  7. DIAZEPAM (DIAZEPAM) 2 MILLIGRAM, TABLET) (DIAZEPAM) [Concomitant]
  8. METOPROLOL (METOPROLOL) (100 MILLIGRAM, TABLET) (METOPROLOL) [Concomitant]
  9. PLAVIX (CLOPIDOGREL SULFATE)(75 MILLIGRAM, TABLET) (CLOPIDOGREL SULFAT [Concomitant]
  10. ECOTRIN (ACETYLSALICYLIC ACID) (325 MILLIGRAM, TABLET) (ACETYLSALICYLI [Concomitant]
  11. LIPITOR [Concomitant]
  12. PROTONIX (PANTOPRAZOLE) (40 MILLIGRAM, TABLET) (PANTOPRAZOLE) [Concomitant]
  13. TYLENOL (PARACETAMOL) (TABLET) (PARACETAMOL) [Concomitant]
  14. RESTASIS (CICLOSPORIN) (EYE DROPS) (CICLOSPORIN) [Concomitant]
  15. TOBRADEX (DEXAMETHASONE, TOBRAMYCIN) (EYE DROPS) (DEXAMETHASONE, TOBRA [Concomitant]
  16. PROTOPIC (TACROLIMUS) (OINTMENT) (TACROLIMUS) [Concomitant]
  17. VITAMINS (ERGOCALCIFEROL, ASCORBIC ACID, PYRIDOXINE HYDROCHLORIDE, THI [Concomitant]
  18. FLAX SEED OIL (LINUM USITATISSIMUM SEED OIL) (LINUM USITATISSIMUM SEED [Concomitant]
  19. BLEPHAMIDE (PREDNISOLONE ACETATE, SULFACETAMIDE SODIUM)(EYE DROPS)(PRE [Concomitant]

REACTIONS (6)
  - DRY EYE [None]
  - INSOMNIA [None]
  - NERVOUSNESS [None]
  - NEUROPATHY PERIPHERAL [None]
  - POLLAKIURIA [None]
  - STENT PLACEMENT [None]
